FAERS Safety Report 9692670 (Version 2)
Quarter: 2013Q4

REPORT INFORMATION
  Report Type: Spontaneous
  Country: FR (occurrence: FR)
  Receive Date: 20131118
  Receipt Date: 20131118
  Transmission Date: 20140711
  Serious: Yes (Disabling, Other)
  Sender: FDA-Public Use
  Company Number: PHHY2013FR105880

PATIENT
  Sex: Female

DRUGS (3)
  1. GILENYA [Suspect]
     Indication: MULTIPLE SCLEROSIS
     Dosage: 0.5 MG, QD
     Route: 048
     Dates: start: 201307, end: 201308
  2. GILENYA [Suspect]
     Dosage: 0.5 MG, QD
     Route: 048
     Dates: start: 20130814, end: 20131001
  3. CERIS [Concomitant]
     Indication: URINARY INCONTINENCE
     Dosage: 2 TABS, DAILY
     Dates: start: 20091201

REACTIONS (1)
  - Urinary incontinence [Recovering/Resolving]
